FAERS Safety Report 17431826 (Version 1)
Quarter: 2020Q1

REPORT INFORMATION
  Report Type: Spontaneous
  Country: US (occurrence: US)
  Receive Date: 20200218
  Receipt Date: 20200218
  Transmission Date: 20200409
  Serious: No
  Sender: FDA-Public Use
  Company Number: US-ENDO PHARMACEUTICALS INC-2019-104825

PATIENT
  Age: 38 Year
  Sex: Female

DRUGS (1)
  1. CABERGOLINE. [Suspect]
     Active Substance: CABERGOLINE
     Indication: HYPERPROLACTINAEMIA
     Dosage: 1 DF, WEEKLY
     Dates: start: 2017, end: 201904

REACTIONS (4)
  - Product storage error [Not Recovered/Not Resolved]
  - Product dose omission [Not Recovered/Not Resolved]
  - Product colour issue [Not Recovered/Not Resolved]
  - Abdominal discomfort [Unknown]

NARRATIVE: CASE EVENT DATE: 201904
